FAERS Safety Report 8701897 (Version 2)
Quarter: 2013Q4

REPORT INFORMATION
  Report Type: Report from Study
  Country: US (occurrence: US)
  Receive Date: 20120803
  Receipt Date: 20131105
  Transmission Date: 20140711
  Serious: Yes (Hospitalization)
  Sender: FDA-Public Use
  Company Number: US-009507513-1208USA000514

PATIENT
  Age: 69 Year
  Sex: Female
  Weight: 65.76 kg

DRUGS (7)
  1. VICTRELIS [Suspect]
     Indication: HEPATITIS C
     Dosage: UNK
     Dates: start: 20110820, end: 20120707
  2. REBETOL [Suspect]
  3. PEGASYS [Suspect]
  4. WARFARIN [Concomitant]
  5. METOPROLOL [Concomitant]
  6. PROCRIT [Concomitant]
  7. LEVOTHYROXINE SODIUM [Concomitant]

REACTIONS (2)
  - Atrial fibrillation [Unknown]
  - Anaemia [Unknown]
